FAERS Safety Report 16942300 (Version 2)
Quarter: 2020Q1

REPORT INFORMATION
  Report Type: Report from Study
  Country: US (occurrence: US)
  Receive Date: 20191021
  Receipt Date: 20200127
  Transmission Date: 20200409
  Serious: No
  Sender: FDA-Public Use
  Company Number: US-SA-2019SA290055

PATIENT
  Age: 18 Year
  Sex: Male

DRUGS (1)
  1. DUPILUMAB [Suspect]
     Active Substance: DUPILUMAB
     Indication: ECZEMA
     Dosage: UNK, QOW
     Dates: start: 201804

REACTIONS (7)
  - Eye discharge [Unknown]
  - Weight increased [Not Recovered/Not Resolved]
  - Eyelid margin crusting [Unknown]
  - Rash [Unknown]
  - Eye allergy [Unknown]
  - Therapeutic response decreased [Unknown]
  - Lacrimation increased [Unknown]

NARRATIVE: CASE EVENT DATE: 201907
